FAERS Safety Report 7197393-1 (Version None)
Quarter: 2010Q4

REPORT INFORMATION
  Report Type: 
  Country: None (occurrence: None)
  Receive Date: 20101213
  Receipt Date: 20100814
  Transmission Date: 20110411
  Serious: Yes (Other)
  Sender: FDA-Public Use
  Company Number: 2010SA048964

PATIENT
  Age: 74 Year
  Sex: Female

DRUGS (6)
  1. LANTUS [Suspect]
     Indication: TYPE 2 DIABETES MELLITUS
     Dosage: 28 UNIT(S);AT BEDTIME;SUBCUTANEOUS
     Route: 057
     Dates: start: 20090101
  2. LANTUS [Suspect]
  3. SOLOSTAR [Suspect]
     Indication: TYPE 2 DIABETES MELLITUS
     Dates: start: 20090101
  4. SOLOSTAR [Suspect]
  5. CON MEDS [Concomitant]
  6. CORTISONE [Concomitant]

REACTIONS (6)
  - DEVICE MALFUNCTION [None]
  - FALL [None]
  - FOOT FRACTURE [None]
  - INCORRECT DOSE ADMINISTERED BY DEVICE [None]
  - PRODUCT QUALITY ISSUE [None]
  - STRESS FRACTURE [None]
